FAERS Safety Report 9356946 (Version 1)
Quarter: 2013Q2

REPORT INFORMATION
  Report Type: Report from Study
  Country: CN (occurrence: CN)
  Receive Date: 20130620
  Receipt Date: 20130620
  Transmission Date: 20140414
  Serious: Yes (Death)
  Sender: FDA-Public Use
  Company Number: CN-ROCHE-1238200

PATIENT
  Sex: Male

DRUGS (3)
  1. CELLCEPT [Suspect]
     Indication: LIVER TRANSPLANT
     Route: 048
     Dates: start: 20110609
  2. PROGRAF [Concomitant]
     Indication: LIVER TRANSPLANT
     Route: 065
     Dates: start: 20110609
  3. PREDNISONE [Concomitant]
     Indication: LIVER TRANSPLANT

REACTIONS (1)
  - Recurrent cancer [Fatal]
